FAERS Safety Report 7660150-3 (Version None)
Quarter: 2011Q3

REPORT INFORMATION
  Report Type: 
  Country: None (occurrence: None)
  Receive Date: 20110805
  Receipt Date: 20110728
  Transmission Date: 20111222
  Serious: No
  Sender: FDA-Public Use
  Company Number: PHHY2011BR68203

PATIENT
  Age: 82 Year
  Sex: Female

DRUGS (2)
  1. GALVUS MET [Suspect]
     Dosage: 1000 MG METF AND 50 MG VILD
  2. RASILEZ [Suspect]
     Dosage: 300 MG, UNK

REACTIONS (1)
  - BRONCHITIS [None]
